FAERS Safety Report 9074274 (Version 1)
Quarter: 2013Q1

REPORT INFORMATION
  Report Type: Spontaneous
  Country: US (occurrence: US)
  Receive Date: 20130129
  Receipt Date: 20130129
  Transmission Date: 20140127
  Serious: Yes (Congenital Anomaly, Other)
  Sender: FDA-Public Use
  Company Number: US-RB-048996-13

PATIENT
  Age: 0 Year
  Sex: Male

DRUGS (11)
  1. SUBOXONE FILM [Suspect]
     Indication: DRUG DEPENDENCE
     Dosage: SUBOXONE FILM
     Route: 064
     Dates: start: 201201, end: 201204
  2. BUPRENORPHINE [Suspect]
     Route: 064
     Dates: start: 201204, end: 201208
  3. BUPRENORPHINE [Suspect]
     Indication: DRUG DEPENDENCE
     Route: 064
     Dates: start: 201208, end: 20121022
  4. BUPRENORPHINE [Suspect]
     Route: 063
     Dates: start: 20121022
  5. KLONOPIN [Suspect]
     Indication: ANXIETY
     Route: 064
     Dates: start: 201204, end: 20121022
  6. KLONOPIN [Suspect]
     Route: 063
     Dates: start: 20121022
  7. FENUGREEK SEED [Suspect]
     Indication: LACTATION DISORDER
     Dosage: DOSING DETAILS UNKNOWN
     Route: 063
     Dates: start: 201210
  8. PRENATAL VITAMINS [Suspect]
     Dosage: DOSING DETAILS UNKNOWN
     Route: 064
     Dates: start: 201204, end: 20121022
  9. PRENATAL VITAMINS [Suspect]
     Indication: MEDICAL DIET
     Dosage: DOSING DETAILS UNKNOWN
     Route: 063
     Dates: start: 20121022
  10. NICOTINE [Suspect]
     Indication: PRODUCT USED FOR UNKNOWN INDICATION
     Dosage: 2 CIGARETTES PER DAY
     Route: 064
     Dates: end: 20121022
  11. NICOTINE [Suspect]
     Dosage: 2 CIGARETTES PER DAY
     Route: 063
     Dates: start: 20121022

REACTIONS (5)
  - Foetal exposure during pregnancy [Recovered/Resolved]
  - Ankyloglossia congenital [Recovered/Resolved]
  - Exposure during breast feeding [Not Recovered/Not Resolved]
  - Caesarean section [None]
  - Maternal drugs affecting foetus [None]
